FAERS Safety Report 18335136 (Version 1)
Quarter: 2020Q4

REPORT INFORMATION
  Report Type: Spontaneous
  Country: AT (occurrence: AT)
  Receive Date: 20201001
  Receipt Date: 20201001
  Transmission Date: 20210113
  Serious: Yes (Other)
  Sender: FDA-Public Use
  Company Number: AT-009507513-2009AUT009918

PATIENT
  Age: 58 Year
  Sex: Female
  Weight: 135 kg

DRUGS (17)
  1. PROPOFOL. [Concomitant]
     Active Substance: PROPOFOL
     Indication: SEDATION
     Dosage: UNK
     Route: 042
  2. DEXDOR [Concomitant]
     Active Substance: DEXMEDETOMIDINE HYDROCHLORIDE
     Indication: SEDATION
     Dosage: UNK
     Route: 042
     Dates: start: 20200830
  3. VASOPRESSIN. [Concomitant]
     Active Substance: VASOPRESSIN
     Indication: CARDIOVASCULAR DISORDER
     Dosage: 2IIU/H
     Route: 042
  4. DEXAMETHASONE. [Concomitant]
     Active Substance: DEXAMETHASONE
     Indication: CORONAVIRUS INFECTION
     Dosage: 20MG
     Route: 042
     Dates: start: 20200817
  5. BAYPRESS [Concomitant]
     Active Substance: NITRENDIPINE
     Indication: HYPERTENSION
     Dosage: UNK
     Route: 048
  6. REMIFENTANIL HYDROCHLORIDE. [Concomitant]
     Active Substance: REMIFENTANIL HYDROCHLORIDE
     Indication: SEDATION
     Dosage: UNK
     Route: 042
  7. DOBUTAMINE [Concomitant]
     Active Substance: DOBUTAMINE HYDROCHLORIDE
     Indication: CARDIOVASCULAR DISORDER
     Dosage: UNK
     Route: 042
  8. PIPITAZ [Suspect]
     Active Substance: PIPERACILLIN SODIUM\TAZOBACTAM SODIUM
     Indication: ANTIBIOTIC PROPHYLAXIS
     Dosage: UNK
     Route: 042
     Dates: start: 20200817, end: 20200827
  9. BLOOD, PLASMA [Concomitant]
     Active Substance: HUMAN PLASMA
     Indication: CORONAVIRUS INFECTION
     Dosage: RECOVERING PLASMA
     Route: 042
  10. AQUAPHORIL [Concomitant]
     Active Substance: XIPAMIDE
     Indication: HYPERTENSION
  11. PERLINGANIT [Interacting]
     Active Substance: NITROGLYCERIN
     Indication: HYPERTENSION
     Dosage: UNK
     Route: 042
     Dates: start: 20200824
  12. REMDESIVIR. [Interacting]
     Active Substance: REMDESIVIR
     Indication: CORONAVIRUS INFECTION
     Dosage: 100 MILLIGRAM, QD
     Route: 042
     Dates: start: 20200818, end: 20200822
  13. CATAPRESAN [Interacting]
     Active Substance: CLONIDINE
     Dosage: UNK
     Route: 042
     Dates: start: 20200824, end: 20200830
  14. CANCIDAS [Suspect]
     Active Substance: CASPOFUNGIN ACETATE
     Indication: SYSTEMIC CANDIDA
     Dosage: 1X70MG, LD (LOADING DOSE) CONTINUED BECAUSE OF WEIGHT
     Route: 042
     Dates: start: 20200831, end: 20200903
  15. AQUAPHORIL [Concomitant]
     Active Substance: XIPAMIDE
     Indication: HYPERNATRAEMIA
     Dosage: UNK
     Route: 048
     Dates: start: 20200823
  16. REMDESIVIR. [Interacting]
     Active Substance: REMDESIVIR
     Indication: ACUTE RESPIRATORY DISTRESS SYNDROME
     Dosage: LOADING DOSE
     Route: 042
     Dates: start: 20200817, end: 20200817
  17. NOREPINEPHRINE. [Concomitant]
     Active Substance: NOREPINEPHRINE
     Indication: CARDIOVASCULAR DISORDER
     Dosage: UNK
     Route: 042

REACTIONS (1)
  - Drug eruption [Recovering/Resolving]

NARRATIVE: CASE EVENT DATE: 20200903
